FAERS Safety Report 20908504 (Version 4)
Quarter: 2022Q3

REPORT INFORMATION
  Report Type: Spontaneous
  Country: PL (occurrence: PL)
  Receive Date: 20220603
  Receipt Date: 20220714
  Transmission Date: 20221027
  Serious: Yes (Other)
  Sender: FDA-Public Use
  Company Number: PL-002147023-NVSC2022PL121928

PATIENT
  Age: 52 Year
  Sex: Female

DRUGS (14)
  1. ADALIMUMAB [Suspect]
     Active Substance: ADALIMUMAB
     Indication: Product used for unknown indication
     Route: 058
     Dates: start: 20150915, end: 2015
  2. ADALIMUMAB [Suspect]
     Active Substance: ADALIMUMAB
     Route: 058
     Dates: start: 20151208
  3. ADALIMUMAB [Suspect]
     Active Substance: ADALIMUMAB
     Route: 058
     Dates: start: 20160301
  4. ADALIMUMAB [Suspect]
     Active Substance: ADALIMUMAB
     Route: 058
     Dates: start: 20200227
  5. ENBREL [Suspect]
     Active Substance: ETANERCEPT
     Indication: Product used for unknown indication
     Route: 065
     Dates: start: 20140811, end: 2014
  6. ENBREL [Suspect]
     Active Substance: ETANERCEPT
     Route: 065
     Dates: start: 20141103
  7. ENBREL [Suspect]
     Active Substance: ETANERCEPT
     Route: 065
     Dates: start: 20150126, end: 2015
  8. ENBREL [Suspect]
     Active Substance: ETANERCEPT
     Route: 065
     Dates: start: 20150420
  9. ISONIAZID\RIFAMPIN [Concomitant]
     Active Substance: ISONIAZID\RIFAMPIN
     Indication: Product used for unknown indication
     Dosage: 300 MG PLUS 150 MG
     Route: 065
  10. SECUKINUMAB [Concomitant]
     Active Substance: SECUKINUMAB
     Indication: Product used for unknown indication
     Route: 065
     Dates: start: 20200629, end: 2020
  11. SECUKINUMAB [Concomitant]
     Active Substance: SECUKINUMAB
     Route: 065
     Dates: start: 20200928
  12. SECUKINUMAB [Concomitant]
     Active Substance: SECUKINUMAB
     Route: 065
     Dates: start: 20210329
  13. SECUKINUMAB [Concomitant]
     Active Substance: SECUKINUMAB
     Route: 065
     Dates: start: 20210929
  14. SULFASALAZINE [Concomitant]
     Active Substance: SULFASALAZINE
     Indication: Product used for unknown indication
     Dosage: 1 DOSAGE FORM, QD
     Route: 065

REACTIONS (4)
  - Psoriatic arthropathy [Unknown]
  - Pustular psoriasis [Unknown]
  - Drug ineffective [Unknown]
  - Rebound psoriasis [Unknown]
